FAERS Safety Report 11988700 (Version 1)
Quarter: 2016Q1

REPORT INFORMATION
  Report Type: Spontaneous
  Country: BR (occurrence: BR)
  Receive Date: 20160202
  Receipt Date: 20160202
  Transmission Date: 20160526
  Serious: Yes (Life-Threatening, Other)
  Sender: FDA-Public Use
  Company Number: PHHY2016BR013150

PATIENT
  Age: 72 Year
  Sex: Female

DRUGS (13)
  1. RIVOTRIL [Concomitant]
     Active Substance: CLONAZEPAM
     Dosage: ALMOST TWO TABLETS OF 0.25 MG PER DAY
     Route: 060
  2. TOLREST [Concomitant]
     Active Substance: SERTRALINE HYDROCHLORIDE
     Dosage: 1 DF (ONE TABLET), QD (IN THE MORNING)
     Route: 065
  3. RIVASTIGMINE. [Suspect]
     Active Substance: RIVASTIGMINE
     Indication: PRODUCT USED FOR UNKNOWN INDICATION
     Dosage: 1 DF (ONE CAPSULE), BID (IN THE MORNING AND AT NIGHT)
     Route: 048
  4. OMEGA 3 [Concomitant]
     Active Substance: OMEGA-3 FATTY ACIDS
     Indication: PRODUCT USED FOR UNKNOWN INDICATION
     Dosage: 1 DF (ONE CAPSULE), QD
     Route: 065
  5. TOLREST [Concomitant]
     Active Substance: SERTRALINE HYDROCHLORIDE
     Dosage: 1 DF (ONE TABLET), BID (IN THE MORNING AND IN THE AFTERNOON)
     Route: 065
  6. RIVOTRIL [Concomitant]
     Active Substance: CLONAZEPAM
     Dosage: 1 DF (ONE TABLET OF 0.5 MG), QD (IN THE MORNING, MORE OR LESS AT 7:30 AM)
     Route: 065
  7. RIVOTRIL [Concomitant]
     Active Substance: CLONAZEPAM
     Indication: PRODUCT USED FOR UNKNOWN INDICATION
     Dosage: 1 DF (ONE TABLET OF 0.25 MG), BID (AT 9 AM AND AT 5 PM)
     Route: 060
  8. TOLREST [Concomitant]
     Active Substance: SERTRALINE HYDROCHLORIDE
     Indication: PRODUCT USED FOR UNKNOWN INDICATION
     Dosage: 1 DF (ONE TABLET), QD (AT LUNCH, MORE OR LESS AT 1 PM)
     Route: 065
  9. MEMANTINE. [Concomitant]
     Active Substance: MEMANTINE
     Indication: PRODUCT USED FOR UNKNOWN INDICATION
     Dosage: 1 DF (ONE TABLET), BID (IN THE MORNING AND AT NIGHT)
     Route: 065
  10. AMITRIPTYLINE [Concomitant]
     Active Substance: AMITRIPTYLINE
     Indication: PRODUCT USED FOR UNKNOWN INDICATION
     Dosage: 3 DF (3 TABLETS DAILY; ONE TABLET IN THE MORNING AND TWO TABLETS AT BEDTIME)
     Route: 065
  11. SERTRALINE HYDROCHLORIDE. [Concomitant]
     Active Substance: SERTRALINE HYDROCHLORIDE
     Indication: PRODUCT USED FOR UNKNOWN INDICATION
     Dosage: UNK
     Route: 065
     Dates: start: 201407
  12. SERTRALINE HYDROCHLORIDE. [Concomitant]
     Active Substance: SERTRALINE HYDROCHLORIDE
     Dosage: 1 DF (ONE TABLET), BID (IN THE MORNING AND IN THE AFTERNOON)
     Route: 065
     Dates: start: 20150324
  13. RAZAPINA [Concomitant]
     Active Substance: MIRTAZAPINE
     Indication: PRODUCT USED FOR UNKNOWN INDICATION
     Dosage: 1 DF (ONE TABLET), QHS
     Route: 065
     Dates: start: 201407

REACTIONS (45)
  - Thinking abnormal [Unknown]
  - Aggression [Unknown]
  - Performance status decreased [Unknown]
  - Influenza like illness [Unknown]
  - Amnesia [Not Recovered/Not Resolved]
  - Communication disorder [Unknown]
  - Dysphonia [Unknown]
  - Decreased appetite [Unknown]
  - Crying [Unknown]
  - Disturbance in attention [Unknown]
  - Suspiciousness [Not Recovered/Not Resolved]
  - Cognitive disorder [Unknown]
  - Sleep talking [Unknown]
  - Cystitis [Not Recovered/Not Resolved]
  - Dementia Alzheimer^s type [Unknown]
  - Confusional state [Not Recovered/Not Resolved]
  - Psychiatric symptom [Recovering/Resolving]
  - Anxiety [Recovering/Resolving]
  - Arthralgia [Unknown]
  - Influenza [Not Recovered/Not Resolved]
  - Urinary tract infection [Unknown]
  - Brain hypoxia [Unknown]
  - Delusion [Unknown]
  - Mental fatigue [Unknown]
  - Fear [Unknown]
  - Gastrointestinal infection [Unknown]
  - Oropharyngeal discomfort [Unknown]
  - Colitis [Not Recovered/Not Resolved]
  - Mental impairment [Unknown]
  - Sensory disturbance [Unknown]
  - Agitation [Not Recovered/Not Resolved]
  - Ageusia [Recovered/Resolved]
  - Inflammation [Not Recovered/Not Resolved]
  - Nightmare [Unknown]
  - Tremor [Unknown]
  - Depression [Recovering/Resolving]
  - Aphasia [Unknown]
  - Hallucination, visual [Unknown]
  - Cerebral infarction [Unknown]
  - Back pain [Unknown]
  - Memory impairment [Not Recovered/Not Resolved]
  - Nervousness [Not Recovered/Not Resolved]
  - Disorientation [Not Recovered/Not Resolved]
  - Learning disorder [Unknown]
  - Movement disorder [Unknown]

NARRATIVE: CASE EVENT DATE: 2014
